FAERS Safety Report 8945447 (Version 1)
Quarter: 2012Q4

REPORT INFORMATION
  Report Type: 
  Country: US (occurrence: US)
  Receive Date: 20121205
  Receipt Date: 20121205
  Transmission Date: 20130627
  Serious: Yes (Other)
  Sender: FDA-Public Use
  Company Number: US-PFIZER INC-2012301629

PATIENT
  Sex: Female

DRUGS (1)
  1. REVATIO [Suspect]
     Indication: PULMONARY HYPERTENSION
     Dosage: UNK
     Dates: start: 200902

REACTIONS (5)
  - Pulmonary thrombosis [Unknown]
  - Condition aggravated [Unknown]
  - Pulmonary arterial pressure increased [Unknown]
  - Impaired work ability [Unknown]
  - Drug ineffective [Unknown]
